FAERS Safety Report 8232473-0 (Version None)
Quarter: 2012Q1

REPORT INFORMATION
  Report Type: 
  Country: None (occurrence: None)
  Receive Date: 20120320
  Receipt Date: 20120308
  Transmission Date: 20120608
  Serious: Yes (Other)
  Sender: FDA-Public Use
  Company Number: 2012SP006382

PATIENT
  Sex: Female

DRUGS (4)
  1. UNSPECIFIED MEDICATION [Suspect]
     Indication: HEPATITIS C
     Dates: start: 20021115, end: 20031017
  2. UNSPECIFIED MEDICATION [Suspect]
     Indication: HEPATITIS C
     Dates: start: 20111031
  3. RIBAVIRIN [Suspect]
     Indication: HEPATITIS C
     Dates: start: 20021115, end: 20031017
  4. RIBAVIRIN [Suspect]
     Indication: HEPATITIS C
     Dates: start: 20111031

REACTIONS (2)
  - LICHEN PLANUS [None]
  - VARICES OESOPHAGEAL [None]
